FAERS Safety Report 4483482-9 (Version None)
Quarter: 2004Q4

REPORT INFORMATION
  Report Type: 
  Country: None (occurrence: None)
  Receive Date: 20041020
  Receipt Date: 20041005
  Transmission Date: 20050328
  Serious: Yes (Other)
  Sender: FDA-Public Use
  Company Number: 2004075230

PATIENT
  Age: 42 Year
  Sex: Female
  Weight: 64.8644 kg

DRUGS (2)
  1. ZYRTEC-D 12 HOUR [Suspect]
     Indication: SINUSITIS
     Dosage: 2 IN 1 D, ORAL
     Route: 048
     Dates: start: 20000101
  2. VIVELLE PATCH (ESTRADIOL) [Concomitant]

REACTIONS (19)
  - ABDOMINAL DISTENSION [None]
  - ASTHENIA [None]
  - BENIGN COLONIC POLYP [None]
  - BLOOD GLUCOSE INCREASED [None]
  - BLOOD IRON DECREASED [None]
  - CONSTIPATION [None]
  - DIABETES MELLITUS NON-INSULIN-DEPENDENT [None]
  - FATIGUE [None]
  - FEELING ABNORMAL [None]
  - GASTRIC ULCER [None]
  - HAEMATOCRIT DECREASED [None]
  - HAEMOGLOBIN DECREASED [None]
  - HAEMORRHAGE [None]
  - INTESTINAL ULCER [None]
  - PLATELET COUNT DECREASED [None]
  - RED BLOOD CELL COUNT DECREASED [None]
  - SERUM FERRITIN DECREASED [None]
  - SOMNOLENCE [None]
  - WEIGHT INCREASED [None]
